FAERS Safety Report 11569290 (Version 1)
Quarter: 2015Q3

REPORT INFORMATION
  Report Type: Spontaneous
  Country: US (occurrence: US)
  Receive Date: 20150929
  Receipt Date: 20150929
  Transmission Date: 20151125
  Serious: Yes (Hospitalization, Other)
  Sender: FDA-Public Use
  Company Number: US-ALEMBIC PHARMACUETICALS LIMITED-2015SCAL000649

PATIENT
  Age: 17 Year
  Sex: Female

DRUGS (2)
  1. CLONIDINE HYDROCHLORIDE. [Suspect]
     Active Substance: CLONIDINE HYDROCHLORIDE
     Indication: PRODUCT USED FOR UNKNOWN INDICATION
     Dosage: 2.4 MG, UNK
     Route: 048
  2. BUPROPION. [Suspect]
     Active Substance: BUPROPION
     Indication: PRODUCT USED FOR UNKNOWN INDICATION
     Dosage: 1500 MG, UNK
     Route: 048

REACTIONS (13)
  - Somnolence [Recovered/Resolved]
  - Generalised tonic-clonic seizure [Recovered/Resolved]
  - Sinus bradycardia [Recovered/Resolved]
  - Miosis [Recovered/Resolved]
  - Suicide attempt [Unknown]
  - Mydriasis [Recovered/Resolved]
  - Sedation [Recovered/Resolved]
  - Tachycardia [Recovered/Resolved]
  - Anxiety [Recovered/Resolved]
  - Nausea [Recovered/Resolved]
  - Hypertension [Recovered/Resolved]
  - Tremor [Recovered/Resolved]
  - Overdose [Unknown]
